FAERS Safety Report 5415587-X (Version None)
Quarter: 2007Q3

REPORT INFORMATION
  Report Type: 
  Country: None (occurrence: None)
  Receive Date: 20070815
  Receipt Date: 20070806
  Transmission Date: 20080115
  Serious: Yes (Other)
  Sender: FDA-Public Use
  Company Number: US-JNJFOC-20070801358

PATIENT
  Sex: Female
  Weight: 49.44 kg

DRUGS (6)
  1. REMICADE [Suspect]
     Indication: COLITIS ULCERATIVE
     Route: 042
  2. ULTRACET [Concomitant]
  3. MIRALAX [Concomitant]
  4. AMBIEN [Concomitant]
  5. PREDNISONE TAB [Concomitant]
  6. ARAVA [Concomitant]

REACTIONS (2)
  - ABORTION SPONTANEOUS [None]
  - DRUG EXPOSURE DURING PREGNANCY [None]
